FAERS Safety Report 14585698 (Version 1)
Quarter: 2018Q1

REPORT INFORMATION
  Report Type: Spontaneous
  Country: US (occurrence: US)
  Receive Date: 20180301
  Receipt Date: 20180301
  Transmission Date: 20180509
  Serious: No
  Sender: FDA-Public Use
  Company Number: US-TEVA-2018-US-855491

PATIENT
  Sex: Female

DRUGS (1)
  1. ESTRADIOL. [Suspect]
     Active Substance: ESTRADIOL
     Indication: ATROPHY
     Route: 065
     Dates: start: 20180116

REACTIONS (3)
  - Fungal infection [Unknown]
  - Vaginal infection [Unknown]
  - Application site odour [Unknown]

NARRATIVE: CASE EVENT DATE: 20180129
